FAERS Safety Report 8920065 (Version 2)
Quarter: 2013Q1

REPORT INFORMATION
  Report Type: Spontaneous
  Country: US (occurrence: US)
  Receive Date: 20121121
  Receipt Date: 20130125
  Transmission Date: 20140127
  Serious: Yes (Other)
  Sender: FDA-Public Use
  Company Number: US-BAYER-2012-120390

PATIENT
  Age: 47 Year
  Sex: Female
  Weight: 71.2 kg

DRUGS (9)
  1. OCELLA [Suspect]
     Dosage: UNK
     Dates: start: 200709
  2. YASMIN [Suspect]
  3. BENAZEPRIL [Concomitant]
     Indication: BLOOD PRESSURE ABNORMAL
     Dosage: UNK
     Dates: start: 2010
  4. ANTIBIOTICS [Concomitant]
  5. BENAZEPRIL HYDROCHLORIDE W/HYDROCHLOROTHIAZ. [Concomitant]
     Dosage: UNK
     Dates: start: 2010
  6. NSAID^S [Concomitant]
  7. MAXALT [Concomitant]
     Indication: MIGRAINE
     Dosage: UNK UNK, PRN
  8. MULTIVITAMINS [Concomitant]
     Dosage: DAILY
     Dates: start: 201110, end: 201111
  9. BUPROPION [Concomitant]
     Indication: MENOPAUSE
     Dosage: DAILY
     Dates: start: 201110, end: 201111

REACTIONS (5)
  - Gallbladder injury [None]
  - Cholelithiasis [None]
  - Injury [None]
  - Pain [None]
  - Pain [None]
